FAERS Safety Report 6977537-4 (Version None)
Quarter: 2010Q3

REPORT INFORMATION
  Report Type: 
  Country: None (occurrence: None)
  Receive Date: 20100910
  Receipt Date: 20100831
  Transmission Date: 20110219
  Serious: Yes (Death, Hospitalization, Other)
  Sender: FDA-Public Use
  Company Number: DE-ABBOTT-10P-062-0658568-00

PATIENT
  Sex: Male
  Weight: 88.5 kg

DRUGS (22)
  1. ZEMPLAR [Suspect]
     Indication: HYPERPARATHYROIDISM SECONDARY
     Dosage: 1 AMPOULE 5 MCG/ML INJECTION AMP I.V.
     Route: 042
     Dates: start: 20090819, end: 20100602
  2. ZEMPLAR [Suspect]
     Indication: BLOOD PARATHYROID HORMONE INCREASED
  3. FOSRENOL [Concomitant]
     Indication: PRODUCT USED FOR UNKNOWN INDICATION
     Dosage: 1000MG CHEWING TABLETS AT MEAL TIME :TID/DAILY DOSE 2000MG
  4. BLOPRESS [Concomitant]
     Indication: PRODUCT USED FOR UNKNOWN INDICATION
     Dosage: 16MG TABLETS BID/DAILY DOSE  24MG
  5. VESDIL PROTECT [Concomitant]
     Indication: PRODUCT USED FOR UNKNOWN INDICATION
     Dosage: 10MG TABLETS/BID DAILY DOSE 15MG
  6. MOXONIDIN AL [Concomitant]
     Indication: PRODUCT USED FOR UNKNOWN INDICATION
     Dosage: 0.3MG TABLETS QID DAILY DOSE 0.9MG
  7. CARMEN [Concomitant]
     Indication: PRODUCT USED FOR UNKNOWN INDICATION
     Dosage: 20MG TABLETS BID 30MG
  8. CONCOR [Concomitant]
     Indication: PRODUCT USED FOR UNKNOWN INDICATION
     Dosage: 5 TABLETS BID
  9. EBRANTIL [Concomitant]
     Indication: PRODUCT USED FOR UNKNOWN INDICATION
     Dosage: 30 RETARD CAPSULES BID
  10. EBRANTIL [Concomitant]
     Dosage: 60 RETARD CAPSULES BID
  11. ASPIRIN [Concomitant]
     Indication: PRODUCT USED FOR UNKNOWN INDICATION
     Dosage: 100 1A PHARMA TABLETS OPD
  12. DREISAVIT N [Concomitant]
     Indication: PRODUCT USED FOR UNKNOWN INDICATION
     Dosage: TABLETS OPD
  13. BICANORM [Concomitant]
     Indication: PRODUCT USED FOR UNKNOWN INDICATION
     Dosage: ON DIALYSIS FREE DAYS TID
  14. TOREM [Concomitant]
     Indication: PRODUCT USED FOR UNKNOWN INDICATION
     Dosage: 10 TABLETS ON DIALYSIS FREE DAYS OPD
  15. CINACALCET HYDROCHLORIDE [Concomitant]
     Indication: PRODUCT USED FOR UNKNOWN INDICATION
     Dosage: 30MG TABLETS OPD
  16. LOCOL [Concomitant]
     Indication: PRODUCT USED FOR UNKNOWN INDICATION
     Dosage: 40 CAPSULES OPD
  17. INSUMAN RAPID [Concomitant]
     Indication: PRODUCT USED FOR UNKNOWN INDICATION
     Dosage: 100IE/ML INJECTION ACCORDING TO LAB
  18. OMEP [Concomitant]
     Indication: PRODUCT USED FOR UNKNOWN INDICATION
     Dosage: 40MG CAPSULES OPD
  19. FAUSTAN [Concomitant]
     Indication: PRODUCT USED FOR UNKNOWN INDICATION
  20. DIALYSIS THERAPY 5000IE ERYPO FS 5000 PREFILLED SYRINGE [Concomitant]
     Indication: PRODUCT USED FOR UNKNOWN INDICATION
     Route: 058
  21. FERRLECIT [Concomitant]
     Indication: PRODUCT USED FOR UNKNOWN INDICATION
     Dosage: 1 AMPOULE FERRLECIT 62.5 MG AMPOULE I.V.
     Route: 042
  22. NEFROCARNIT [Concomitant]
     Indication: PRODUCT USED FOR UNKNOWN INDICATION
     Dosage: 1 AMPOULE I.V.
     Route: 042

REACTIONS (18)
  - ARTERIOSCLEROSIS [None]
  - ARTERIOSCLEROSIS CORONARY ARTERY [None]
  - BLOOD CALCIUM INCREASED [None]
  - BLOOD PRESSURE DECREASED [None]
  - BRADYCARDIA [None]
  - CARDIAC TAMPONADE [None]
  - CIRCULATORY COLLAPSE [None]
  - CORONARY ARTERY DISEASE [None]
  - CORONARY ARTERY OCCLUSION [None]
  - CORONARY ARTERY STENOSIS [None]
  - HYPOKINESIA [None]
  - INFECTION [None]
  - MULTI-ORGAN FAILURE [None]
  - OXYGEN SATURATION DECREASED [None]
  - PERICARDIAL EFFUSION [None]
  - PNEUMOTHORAX [None]
  - PROCTITIS [None]
  - RENAL FAILURE [None]
